FAERS Safety Report 6018528-X (Version None)
Quarter: 2008Q4

REPORT INFORMATION
  Report Type: 
  Country: None (occurrence: None)
  Receive Date: 20081223
  Receipt Date: 20081211
  Transmission Date: 20090506
  Serious: Yes (Hospitalization, Other)
  Sender: FDA-Public Use
  Company Number: GB-PFIZER INC-2008152626

PATIENT

DRUGS (3)
  1. SULFASALAZINE [Suspect]
  2. SULFASALAZINE [Suspect]
  3. DICLOFENAC SODIUM [Concomitant]
     Indication: RHEUMATOID ARTHRITIS

REACTIONS (2)
  - CONVULSION [None]
  - DYSPHASIA [None]
